FAERS Safety Report 14071717 (Version 3)
Quarter: 2018Q3

REPORT INFORMATION
  Report Type: Spontaneous
  Country: US (occurrence: US)
  Receive Date: 20171011
  Receipt Date: 20180910
  Transmission Date: 20181010
  Serious: No
  Sender: FDA-Public Use
  Company Number: US-PFIZER INC-2017415172

PATIENT
  Age: 38 Year
  Sex: Male

DRUGS (1)
  1. LYRICA [Suspect]
     Active Substance: PREGABALIN
     Dosage: 400 MG, 3X/DAY (200 MG TWO CAPSULE, THRICE A DAY)
     Route: 048

REACTIONS (3)
  - Impaired driving ability [Unknown]
  - Prescribed overdose [Unknown]
  - Musculoskeletal disorder [Unknown]
